FAERS Safety Report 4398912-0 (Version None)
Quarter: 2004Q3

REPORT INFORMATION
  Report Type: 
  Country: None (occurrence: None)
  Receive Date: 20040712
  Receipt Date: 20040622
  Transmission Date: 20050211
  Serious: Yes (Hospitalization, Other)
  Sender: FDA-Public Use
  Company Number: JP_040603545

PATIENT
  Age: 36 Year
  Sex: Female

DRUGS (4)
  1. ONCOVIN [Suspect]
     Indication: CERVIX CARCINOMA
  2. BLEOMYCIN [Concomitant]
  3. MITOMYCIN-C BULK POWDER [Concomitant]
  4. CISPLATIN [Concomitant]

REACTIONS (4)
  - PLATELET COUNT DECREASED [None]
  - PULMONARY CONGESTION [None]
  - RENAL FAILURE ACUTE [None]
  - THROMBOTIC MICROANGIOPATHY [None]
